FAERS Safety Report 7031741-8 (Version None)
Quarter: 2010Q4

REPORT INFORMATION
  Report Type: 
  Country: None (occurrence: None)
  Receive Date: 20101007
  Receipt Date: 20100927
  Transmission Date: 20110411
  Serious: No
  Sender: FDA-Public Use
  Company Number: US-BIOGENIDEC-2010BI010468

PATIENT
  Age: 54 Year
  Sex: Female

DRUGS (3)
  1. TYSABRI [Suspect]
     Indication: MULTIPLE SCLEROSIS
     Route: 042
     Dates: start: 20090901
  2. AVONEX [Concomitant]
     Indication: MULTIPLE SCLEROSIS
     Route: 030
     Dates: start: 20010301
  3. AVONEX [Concomitant]
     Route: 030
     Dates: start: 20090909

REACTIONS (13)
  - ARTHRALGIA [None]
  - BURNING SENSATION [None]
  - BURSITIS [None]
  - CHONDROPATHY [None]
  - DECREASED APPETITE [None]
  - DENTAL IMPLANTATION [None]
  - HYPOAESTHESIA [None]
  - MUSCULAR WEAKNESS [None]
  - PARAESTHESIA [None]
  - URINARY TRACT INFECTION [None]
  - URINE ABNORMALITY [None]
  - URINE ANALYSIS ABNORMAL [None]
  - VOMITING [None]
